FAERS Safety Report 15664673 (Version 1)
Quarter: 2018Q4

REPORT INFORMATION
  Report Type: Spontaneous
  Country: US (occurrence: US)
  Receive Date: 20181116
  Receipt Date: 20181116
  Transmission Date: 20190205
  Serious: No
  Sender: FDA-Public Use
  Company Number: None

PATIENT
  Age: 56 Year
  Sex: Female
  Weight: 40.82 kg

DRUGS (1)
  1. DAPTOMYCIN 600MG TEVA [Suspect]
     Active Substance: DAPTOMYCIN
     Indication: SPINAL COMPRESSION FRACTURE
     Route: 042
     Dates: start: 20180719, end: 20180721

REACTIONS (9)
  - Rash [None]
  - Pain [None]
  - Musculoskeletal pain [None]
  - Oral candidiasis [None]
  - Urinary tract infection [None]
  - Product dose omission [None]
  - Myalgia [None]
  - Axillary pain [None]
  - Dysphagia [None]

NARRATIVE: CASE EVENT DATE: 20180721
